FAERS Safety Report 6658113-X (Version None)
Quarter: 2010Q1

REPORT INFORMATION
  Report Type: 
  Country: None (occurrence: None)
  Receive Date: 20100330
  Receipt Date: 20100324
  Transmission Date: 20100710
  Serious: Yes (Other)
  Sender: FDA-Public Use
  Company Number: US-ELI_LILLY_AND_COMPANY-US201003006768

PATIENT
  Age: 64 Year
  Sex: Female

DRUGS (4)
  1. HUMALOG MIX 75/25 [Suspect]
     Indication: DIABETES MELLITUS
     Dosage: 50 U, EACH MORNING
     Dates: start: 20020101
  2. HUMALOG MIX 75/25 [Suspect]
     Dosage: 40 U, EACH EVENING
     Dates: start: 20080101
  3. HUMALOG [Suspect]
     Indication: DIABETES MELLITUS
  4. SYNTHROID [Concomitant]

REACTIONS (2)
  - CARDIAC DISORDER [None]
  - DRUG DISPENSING ERROR [None]
